FAERS Safety Report 6975903-4 (Version None)
Quarter: 2010Q3

REPORT INFORMATION
  Report Type: 
  Country: None (occurrence: None)
  Receive Date: 20100910
  Receipt Date: 20100907
  Transmission Date: 20110219
  Serious: Yes (Disabling)
  Sender: FDA-Public Use
  Company Number: DE-PFIZER INC-2010112714

PATIENT
  Age: 82 Year
  Sex: Female

DRUGS (3)
  1. CELEBREX [Suspect]
     Dosage: 200 MG, UNK
     Dates: start: 20100813, end: 20100823
  2. DIGOXIN [Concomitant]
     Dosage: UNK
  3. METOPROLOL SUCCINATE [Concomitant]
     Dosage: 95 MG, UNK

REACTIONS (1)
  - HALLUCINATION [None]
